FAERS Safety Report 8819747 (Version 2)
Quarter: 2014Q3

REPORT INFORMATION
  Report Type: Report from Study
  Country: US (occurrence: US)
  Receive Date: 20121001
  Receipt Date: 20140903
  Transmission Date: 20150326
  Serious: Yes (Other)
  Sender: FDA-Public Use
  Company Number: US-ROCHE-1124729

PATIENT
  Sex: Female

DRUGS (8)
  1. HERCEPTIN [Suspect]
     Active Substance: TRASTUZUMAB
     Indication: BREAST CANCER FEMALE
  2. HERCEPTIN [Suspect]
     Active Substance: TRASTUZUMAB
     Indication: BREAST CANCER
     Dosage: LOADING DOSE 320MG?MAIN DOSE 160MG?(VIAL SIZE 440MG)
     Route: 042
     Dates: start: 20000210
  3. TAXOL [Concomitant]
     Active Substance: PACLITAXEL
     Route: 065
     Dates: start: 20000217
  4. COUMADIN [Concomitant]
     Active Substance: WARFARIN SODIUM
     Route: 065
     Dates: start: 201201
  5. NOVALDEX [Concomitant]
     Active Substance: TAMOXIFEN
  6. ARIMIDEX [Concomitant]
     Active Substance: ANASTROZOLE
  7. KEFLEX [Concomitant]
     Active Substance: CEPHALEXIN
  8. LEVAQUIN [Concomitant]
     Active Substance: LEVOFLOXACIN

REACTIONS (8)
  - Constipation [Unknown]
  - Painful respiration [Unknown]
  - Catheter site erythema [Unknown]
  - Back pain [Unknown]
  - Dyspnoea [Unknown]
  - Nausea [Unknown]
  - Catheter site discharge [Unknown]
  - Dizziness [Unknown]
